FAERS Safety Report 7770318-3 (Version None)
Quarter: 2011Q3

REPORT INFORMATION
  Report Type: 
  Country: None (occurrence: None)
  Receive Date: 20110922
  Receipt Date: 20110407
  Transmission Date: 20111222
  Serious: No
  Sender: FDA-Public Use
  Company Number: US-ASTRAZENECA-2011SE07527

PATIENT
  Age: 48 Year
  Sex: Female
  Weight: 50.3 kg

DRUGS (6)
  1. SOMA [Concomitant]
  2. LORTAB [Concomitant]
  3. TRAZODONE HCL [Concomitant]
  4. SEROQUEL XR [Suspect]
     Indication: BIPOLAR DISORDER
     Route: 048
     Dates: start: 20090101
  5. PHENERGAN HCL [Concomitant]
  6. SEROQUEL XR [Suspect]
     Route: 048
     Dates: start: 20100801

REACTIONS (17)
  - FUNCTIONAL GASTROINTESTINAL DISORDER [None]
  - DYSPHONIA [None]
  - DIARRHOEA [None]
  - AGGRESSION [None]
  - ACTIVITIES OF DAILY LIVING IMPAIRED [None]
  - ROAD TRAFFIC ACCIDENT [None]
  - STUPOR [None]
  - DYSARTHRIA [None]
  - HEADACHE [None]
  - NIGHTMARE [None]
  - DRY MOUTH [None]
  - MEMORY IMPAIRMENT [None]
  - LOGORRHOEA [None]
  - ANGER [None]
  - HEAD TITUBATION [None]
  - TONGUE DISORDER [None]
  - HALLUCINATION, VISUAL [None]
